FAERS Safety Report 4500160-8 (Version None)
Quarter: 2004Q4

REPORT INFORMATION
  Report Type: 
  Country: None (occurrence: None)
  Receive Date: 20041112
  Receipt Date: 20041103
  Transmission Date: 20050328
  Serious: Yes (Hospitalization)
  Sender: FDA-Public Use
  Company Number: GB-JNJFOC-20041101361

PATIENT

DRUGS (2)
  1. SPORANOX [Suspect]
     Route: 065
  2. PREDNISOLONE [Concomitant]
     Route: 065

REACTIONS (1)
  - TREMOR [None]
